FAERS Safety Report 9606029 (Version 1)
Quarter: 2013Q4

REPORT INFORMATION
  Report Type: Spontaneous
  Country: US (occurrence: US)
  Receive Date: 20131008
  Receipt Date: 20131008
  Transmission Date: 20140711
  Serious: No
  Sender: FDA-Public Use
  Company Number: US-AMGEN-USASP2013039494

PATIENT
  Age: 81 Year
  Sex: Female

DRUGS (9)
  1. PROLIA [Suspect]
     Indication: OSTEOPOROSIS
     Dosage: UNK
     Dates: start: 2012
  2. ASPIRIN [Concomitant]
  3. ZYRTEC [Concomitant]
     Indication: HEADACHE
     Dosage: UNK UNK, AS NECESSARY
  4. METOPROLOL [Concomitant]
     Dosage: UNK UNK, BID
  5. CALTRATE + D                       /00944201/ [Concomitant]
     Dosage: UNK UNK, BID
  6. MELOXICAM [Concomitant]
     Indication: OSTEOARTHRITIS
     Dosage: UNK UNK, AS NECESSARY
  7. LEVOTHYROXINE [Concomitant]
  8. LISINOPRIL/HCTZ [Concomitant]
  9. PRAVASTATIN [Concomitant]

REACTIONS (1)
  - Pruritus [Unknown]
